FAERS Safety Report 24773525 (Version 1)
Quarter: 2024Q4

REPORT INFORMATION
  Report Type: Report from Study
  Country: US (occurrence: US)
  Receive Date: 20241225
  Receipt Date: 20241225
  Transmission Date: 20250115
  Serious: Yes (Other)
  Sender: ABBVIE
  Company Number: US-ABBVIE-6061631

PATIENT
  Sex: Male

DRUGS (1)
  1. DALVANCE [Suspect]
     Active Substance: DALBAVANCIN
     Indication: Medical device site joint infection
     Route: 042
     Dates: start: 20241201

REACTIONS (5)
  - Leukopenia [Not Recovered/Not Resolved]
  - Off label use [Not Recovered/Not Resolved]
  - Blood creatinine increased [Recovering/Resolving]
  - Rash [Recovered/Resolved]
  - Infection [Not Recovered/Not Resolved]

NARRATIVE: CASE EVENT DATE: 20241201
